FAERS Safety Report 5156850-X (Version None)
Quarter: 2006Q4

REPORT INFORMATION
  Report Type: 
  Country: None (occurrence: None)
  Receive Date: 20061115
  Receipt Date: 20061106
  Transmission Date: 20070319
  Serious: Yes (Hospitalization)
  Sender: FDA-Public Use
  Company Number: 2006127368

PATIENT
  Sex: Male

DRUGS (2)
  1. LIPITOR [Suspect]
     Dosage: (20 MG), ORAL
     Route: 048
     Dates: start: 20040101
  2. GRAPEFRUIT JUICE (CITRUS PARADISI FRUIT JUICE) [Suspect]
     Dosage: ORAL
     Route: 048

REACTIONS (3)
  - CHROMATURIA [None]
  - RHABDOMYOLYSIS [None]
  - WEIGHT DECREASED [None]
